FAERS Safety Report 6433618-5 (Version None)
Quarter: 2009Q4

REPORT INFORMATION
  Report Type: 
  Country: None (occurrence: None)
  Receive Date: 20091106
  Receipt Date: 20091106
  Transmission Date: 20100525
  Serious: Yes (Hospitalization)
  Sender: FDA-Public Use
  Company Number: None

PATIENT
  Age: 47 Year
  Sex: Male

DRUGS (1)
  1. AMOXICILLIN [Suspect]
     Indication: INFECTION
     Dosage: UNKNOWN MG TID PO
     Route: 048
     Dates: start: 20090728, end: 20090807

REACTIONS (2)
  - ANGIOEDEMA [None]
  - RASH GENERALISED [None]
